FAERS Safety Report 8005984-0 (Version None)
Quarter: 2011Q4

REPORT INFORMATION
  Report Type: 
  Country: None (occurrence: None)
  Receive Date: 20111226
  Receipt Date: 20111215
  Transmission Date: 20120403
  Serious: Yes (Hospitalization)
  Sender: FDA-Public Use
  Company Number: AR-AMGEN-ARGSP2011067747

PATIENT
  Age: 63 Year
  Sex: Female
  Weight: 59 kg

DRUGS (2)
  1. ENBREL [Suspect]
     Indication: RHEUMATOID ARTHRITIS
     Dosage: 50 MG, WEEKLY
     Route: 058
     Dates: start: 20101220, end: 20110501
  2. METHOTREXATE [Concomitant]
     Dosage: UNK

REACTIONS (1)
  - HYPOTONIA [None]
